FAERS Safety Report 23781368 (Version 1)
Quarter: 2024Q2

REPORT INFORMATION
  Report Type: Spontaneous
  Country: US (occurrence: US)
  Receive Date: 20240425
  Receipt Date: 20240425
  Transmission Date: 20240715
  Serious: No
  Sender: FDA-Public Use
  Company Number: US-E2BLSMVVAL-SPO/USA/24/0005769

PATIENT
  Age: 17 Year

DRUGS (1)
  1. ZENATANE [Suspect]
     Active Substance: ISOTRETINOIN
     Indication: Product used for unknown indication
     Route: 065

REACTIONS (4)
  - Dry skin [Unknown]
  - Nasal dryness [Unknown]
  - Headache [Unknown]
  - Irritability [Unknown]

NARRATIVE: CASE EVENT DATE: 20240410
